FAERS Safety Report 6959536-1 (Version None)
Quarter: 2010Q3

REPORT INFORMATION
  Report Type: 
  Country: None (occurrence: None)
  Receive Date: 20100827
  Receipt Date: 20100806
  Transmission Date: 20110219
  Serious: Yes (Hospitalization)
  Sender: FDA-Public Use
  Company Number: 2008002986

PATIENT
  Age: 75 Year
  Sex: Male
  Weight: 78.6 kg

DRUGS (9)
  1. ERLOTINIB HYDROCHLORIDE [Suspect]
     Indication: NON-SMALL CELL LUNG CANCER
     Dosage: 150 MG, QD, ORAL
     Route: 048
     Dates: start: 20080904, end: 20080928
  2. SUNITINIB/PLACEBO [Suspect]
     Indication: NON-SMALL CELL LUNG CANCER
     Dosage: (37.5 MG, QD), ORAL
     Route: 048
     Dates: start: 20080904, end: 20080928
  3. MULTI-VITAMINS [Concomitant]
  4. TYLENOL WITH CODEINE (PANADEINE CO) [Concomitant]
  5. BENADRYL [Concomitant]
  6. MOTRIN [Concomitant]
  7. XALATAN [Concomitant]
  8. REMERON [Concomitant]
  9. DOXYCYCLINE HYCLATE (DOXYCYCLINE HYCLATE) [Concomitant]

REACTIONS (8)
  - CEREBRAL INFARCTION [None]
  - CEREBRAL ISCHAEMIA [None]
  - CONFUSIONAL STATE [None]
  - GAIT DISTURBANCE [None]
  - HYPONATRAEMIA [None]
  - IMPULSIVE BEHAVIOUR [None]
  - MEMORY IMPAIRMENT [None]
  - PNEUMONIA [None]
